FAERS Safety Report 25364893 (Version 1)
Quarter: 2025Q2

REPORT INFORMATION
  Report Type: Spontaneous
  Country: RO (occurrence: RO)
  Receive Date: 20250527
  Receipt Date: 20250527
  Transmission Date: 20250717
  Serious: Yes (Other)
  Sender: MERCK SHARP & DOHME LLC
  Company Number: RO-009507513-2287219

PATIENT
  Sex: Female

DRUGS (4)
  1. PEMBROLIZUMAB [Suspect]
     Active Substance: PEMBROLIZUMAB
     Dates: start: 20240514, end: 20240514
  2. PEMBROLIZUMAB [Suspect]
     Active Substance: PEMBROLIZUMAB
     Dates: start: 20240604, end: 20240604
  3. PEMBROLIZUMAB [Suspect]
     Active Substance: PEMBROLIZUMAB
     Dates: start: 20240923, end: 20240923
  4. PEMBROLIZUMAB [Suspect]
     Active Substance: PEMBROLIZUMAB
     Dates: start: 20250414, end: 20250414

REACTIONS (10)
  - Hepatic cytolysis [Unknown]
  - Cholestasis [Unknown]
  - Arthralgia [Unknown]
  - Lymphadenitis [Unknown]
  - Jaundice [Unknown]
  - Abdominal pain upper [Unknown]
  - Asthenia [Unknown]
  - Urine osmolarity increased [Unknown]
  - Autoimmune hepatitis [Unknown]
  - Malignant neoplasm progression [Unknown]

NARRATIVE: CASE EVENT DATE: 20240101
